FAERS Safety Report 19429619 (Version 1)
Quarter: 2021Q2

REPORT INFORMATION
  Report Type: Spontaneous
  Country: NL (occurrence: NL)
  Receive Date: 20210617
  Receipt Date: 20210617
  Transmission Date: 20210717
  Serious: Yes (Hospitalization)
  Sender: FDA-Public Use
  Company Number: NL-TEVA-2021-NL-1922022

PATIENT
  Age: 58 Year
  Sex: Female
  Weight: 90.4 kg

DRUGS (4)
  1. FLUOROURACIL INJECTIE/INFUUS / BRAND NAME NOT SPECIFIED [Suspect]
     Active Substance: FLUOROURACIL
     Indication: BREAST CANCER
     Dosage: INJECTION/INFUSION ,1 COURSE = 1 X PER 21 DAYS. THE PATIENT HAS HAD A TOTAL OF 5 COURSES OF FEC , UN
     Dates: start: 20071113
  2. EPIRUBICINE INJECTIE/INFUUS / BRAND NAME NOT SPECIFIED [Suspect]
     Active Substance: EPIRUBICIN
     Indication: BREAST CANCER
     Dosage: INJECTION/INFUSION ,1 COURSE = 1 X PER 21 DAYS. THE PATIENT HAS HAD A TOTAL OF 5 COURSES OF FEC , UN
     Dates: start: 20071113
  3. CYCLOFOSFAMIDE INJECTIE/INFUUS / BRAND NAME NOT SPECIFIED [Suspect]
     Active Substance: CYCLOPHOSPHAMIDE
     Indication: BREAST CANCER
     Dosage: INJECTION/INFUSION , 1 COURSE = 1 X PER 21 DAYS. THE PATIENT HAS HAD A TOTAL OF 5 COURSES OF FEC. ,
     Dates: start: 20071113
  4. RIVAROXABAN TABLET  2,5MG / BRAND NAME NOT SPECIFIED [Concomitant]
     Dosage: THERAPY END DATE : ASKU
     Dates: start: 2021

REACTIONS (2)
  - Cardiotoxicity [Not Recovered/Not Resolved]
  - Cardiac failure [Not Recovered/Not Resolved]

NARRATIVE: CASE EVENT DATE: 20210514
